FAERS Safety Report 5263941-1 (Version None)
Quarter: 2007Q1

REPORT INFORMATION
  Report Type: 
  Country: None (occurrence: None)
  Receive Date: 20070313
  Receipt Date: 20070307
  Transmission Date: 20070707
  Serious: Yes (Other)
  Sender: FDA-Public Use
  Company Number: US-ELI_LILLY_AND_COMPANY-US200703001541

PATIENT
  Age: 81 Year
  Sex: Male

DRUGS (3)
  1. HUMULIN N [Suspect]
     Indication: DIABETES MELLITUS
     Dates: start: 19940101, end: 20040101
  2. HUMALOG [Suspect]
     Indication: DIABETES MELLITUS
     Dates: start: 20040101
  3. LANTUS [Concomitant]
     Indication: DIABETES MELLITUS
     Dosage: 37 U, EACH MORNING

REACTIONS (4)
  - BLINDNESS [None]
  - MACULAR DEGENERATION [None]
  - VISUAL ACUITY REDUCED [None]
  - VISUAL FIELD DEFECT [None]
